FAERS Safety Report 8836524 (Version 2)
Quarter: 2013Q1

REPORT INFORMATION
  Report Type: Spontaneous
  Country: US (occurrence: None)
  Receive Date: 20121009
  Receipt Date: 20121017
  Transmission Date: 20140127
  Serious: Yes (Hospitalization)
  Sender: FDA-Public Use
  Company Number: 2012-0970

PATIENT
  Age: 76 Year
  Sex: Male

DRUGS (3)
  1. KYPROLIS [Suspect]
     Indication: PRODUCT USED FOR UNKNOWN INDICATION
     Route: 042
     Dates: start: 20120908
  2. LASIX (FUROSEMIDE) (FUROSEMIDE) [Concomitant]
  3. COUMADIN (WARFARIN SODIUM) (WARFARIN SODIUM) [Concomitant]

REACTIONS (4)
  - Fluid overload [None]
  - Pulmonary oedema [None]
  - Chest pain [None]
  - Generalised oedema [None]
